FAERS Safety Report 9220332 (Version 1)
Quarter: 2013Q2

REPORT INFORMATION
  Report Type: Spontaneous
  Country: US (occurrence: US)
  Receive Date: 20130409
  Receipt Date: 20130409
  Transmission Date: 20140414
  Serious: No
  Sender: FDA-Public Use
  Company Number: US-ASTRAZENECA-2013SE20288

PATIENT
  Age: 72 Year
  Sex: Female
  Weight: 83.9 kg

DRUGS (2)
  1. TOPROL XL [Suspect]
     Indication: HYPERTENSION
     Route: 048
  2. ONDANSETRON HCL [Suspect]

REACTIONS (6)
  - Gastric disorder [Unknown]
  - Influenza [Unknown]
  - Hypersensitivity [Unknown]
  - Inappropriate affect [Unknown]
  - Swelling face [Unknown]
  - Arrhythmia [Unknown]
